FAERS Safety Report 11360909 (Version 1)
Quarter: 2015Q3

REPORT INFORMATION
  Report Type: Spontaneous
  Country: TW (occurrence: TW)
  Receive Date: 20150810
  Receipt Date: 20150810
  Transmission Date: 20151125
  Serious: Yes (Other)
  Sender: FDA-Public Use
  Company Number: TW-PFIZER INC-2015261681

PATIENT
  Age: 52 Year
  Sex: Male

DRUGS (1)
  1. VARENICLINE TARTRATE [Suspect]
     Active Substance: VARENICLINE TARTRATE
     Indication: SMOKING CESSATION THERAPY
     Dosage: NORMAL DOSE ACCORDING TO THE PACKAGE INSERT

REACTIONS (4)
  - Discomfort [Unknown]
  - Flushing [Unknown]
  - Blood pressure increased [Recovered/Resolved]
  - Dizziness [Unknown]
